FAERS Safety Report 10655186 (Version 1)
Quarter: 2014Q4

REPORT INFORMATION
  Report Type: Spontaneous
  Country: US (occurrence: None)
  Receive Date: 20141215
  Receipt Date: 20141215
  Transmission Date: 20150529
  Serious: No
  Sender: FDA-Public Use
  Company Number: None

PATIENT
  Age: 52 Year
  Sex: Female
  Weight: 64.86 kg

DRUGS (1)
  1. BUPROPION [Suspect]
     Active Substance: BUPROPION
     Indication: DEPRESSION
     Dosage: 1 TABLET
     Route: 048
     Dates: start: 20141129, end: 20141206

REACTIONS (9)
  - Dizziness [None]
  - Abdominal discomfort [None]
  - Feeling abnormal [None]
  - Pain [None]
  - Product substitution issue [None]
  - Product quality issue [None]
  - Malaise [None]
  - Migraine [None]
  - Tinnitus [None]

NARRATIVE: CASE EVENT DATE: 20141129
